FAERS Safety Report 4909473-9 (Version None)
Quarter: 2006Q1

REPORT INFORMATION
  Report Type: 
  Country: None (occurrence: None)
  Receive Date: 20060213
  Receipt Date: 20050913
  Transmission Date: 20060701
  Serious: Yes (Hospitalization)
  Sender: FDA-Public Use
  Company Number: NZ-MERCK-0509NZL00017

PATIENT
  Sex: Male

DRUGS (13)
  1. PROCHLORPERAZINE [Concomitant]
     Route: 065
  2. TRAMADOL HYDROCHLORIDE [Concomitant]
     Route: 065
  3. CIPROFLOXACIN HYDROCHLORIDE [Concomitant]
     Route: 065
  4. INFLUENZA VIRUS VACCINE (UNSPECIFIED) [Concomitant]
     Route: 065
     Dates: start: 20030327
  5. TRIAMCINOLONE [Concomitant]
     Route: 065
     Dates: start: 20021007
  6. VIOXX [Suspect]
     Indication: ARTHRALGIA
     Route: 048
     Dates: start: 20020527, end: 20030903
  7. ATENOLOL [Concomitant]
     Route: 065
  8. ACETAMINOPHEN AND PROPOXYPHENE HYDROCHLORIDE [Concomitant]
     Route: 065
  9. ACETAMINOPHEN [Concomitant]
     Route: 065
  10. OMEPRAZOLE [Concomitant]
     Route: 065
  11. BECLOMETHASONE DIPROPIONATE [Concomitant]
     Route: 065
  12. LEVOCABASTINE HYDROCHLORIDE [Concomitant]
     Route: 065
  13. LORATADINE [Concomitant]
     Route: 065

REACTIONS (2)
  - BLOOD UREA INCREASED [None]
  - PULMONARY EMBOLISM [None]
